FAERS Safety Report 9508114 (Version 1)
Quarter: 2013Q3

REPORT INFORMATION
  Report Type: Spontaneous
  Country: US (occurrence: US)
  Receive Date: 20130909
  Receipt Date: 20130909
  Transmission Date: 20140515
  Serious: Yes (Hospitalization)
  Sender: FDA-Public Use
  Company Number: US-PFIZER INC-2013256328

PATIENT
  Age: 54 Year
  Sex: Female
  Weight: 74.83 kg

DRUGS (4)
  1. NORVASC [Suspect]
     Indication: HYPERTENSION
     Dosage: 10 MG, 1X/DAY
     Route: 048
  2. ZOLOFT [Concomitant]
     Dosage: UNK
  3. DETROL [Concomitant]
     Dosage: 2 MG, UNK
  4. LISINOPRIL W/HYDROCHLOROTHIAZIDE [Concomitant]
     Dosage: UNK

REACTIONS (1)
  - Blood pressure inadequately controlled [Unknown]
